FAERS Safety Report 5483297-9 (Version None)
Quarter: 2007Q4

REPORT INFORMATION
  Report Type: 
  Country: None (occurrence: None)
  Receive Date: 20071012
  Receipt Date: 20071004
  Transmission Date: 20080405
  Serious: Yes (Other)
  Sender: FDA-Public Use
  Company Number: PHBS2007IT16659

PATIENT
  Age: 62 Year
  Sex: Male

DRUGS (1)
  1. IMATINIB [Suspect]
     Indication: CHRONIC MYELOID LEUKAEMIA
     Dosage: 400 MG/D
     Route: 065

REACTIONS (3)
  - EJECTION FRACTION DECREASED [None]
  - MITRAL VALVE REPLACEMENT [None]
  - MYOCARDIAL INFARCTION [None]
